FAERS Safety Report 5713881-6 (Version None)
Quarter: 2008Q2

REPORT INFORMATION
  Report Type: 
  Country: None (occurrence: None)
  Receive Date: 20080421
  Receipt Date: 20080408
  Transmission Date: 20081010
  Serious: Yes (Other)
  Sender: FDA-Public Use
  Company Number: 2008JP000981

PATIENT
  Age: 84 Year
  Sex: Male

DRUGS (11)
  1. PROGRAF [Suspect]
     Indication: RHEUMATOID ARTHRITIS
     Dosage: 1.5 MG, /D , ORAL
     Route: 048
     Dates: start: 20071126, end: 20080120
  2. PERDIPINE-LA (NICARDIPINE HYDROCHLORIDE) [Concomitant]
  3. DIOVAN [Concomitant]
  4. FLUITRAN (TRICHLORMETHIAIDE) [Concomitant]
  5. ASPENON (APRINDINE HYDROCHLORIDE) [Concomitant]
  6. PANALDINE (TICLOPIDINE HYDROCHLORIDE) [Concomitant]
  7. INDOMETHACIN [Concomitant]
  8. ORCL (ACTARIT) [Concomitant]
  9. FAMOTIDINE [Concomitant]
  10. MARZULENE S (LEVOGLUTAMIDE, SODIUM GUALENATE) [Concomitant]
  11. ZOLPIDEM TARTRATE [Concomitant]

REACTIONS (6)
  - CEREBRAL INFARCTION [None]
  - DIZZINESS [None]
  - DYSSTASIA [None]
  - FEELING ABNORMAL [None]
  - GAIT DISTURBANCE [None]
  - NERVE INJURY [None]
